FAERS Safety Report 25134759 (Version 1)
Quarter: 2025Q1

REPORT INFORMATION
  Report Type: Spontaneous
  Country: US (occurrence: US)
  Receive Date: 20250328
  Receipt Date: 20250328
  Transmission Date: 20250409
  Serious: Yes (Life-Threatening, Hospitalization)
  Sender: MYLAN
  Company Number: US-MYLANLABS-2025M1025849

PATIENT
  Age: 65 Year
  Sex: Female

DRUGS (5)
  1. HEPARIN [Suspect]
     Active Substance: HEPARIN SODIUM
     Indication: Troponin increased
  2. METHYLPREDNISOLONE [Suspect]
     Active Substance: METHYLPREDNISOLONE
     Indication: Myocarditis
  3. NIVOLUMAB [Concomitant]
     Active Substance: NIVOLUMAB
     Indication: Mediastinum neoplasm
  4. GEMCITABINE [Concomitant]
     Active Substance: GEMCITABINE
     Indication: Mediastinum neoplasm
  5. CISPLATIN [Concomitant]
     Active Substance: CISPLATIN
     Indication: Mediastinum neoplasm

REACTIONS (1)
  - Drug ineffective [Unknown]
